FAERS Safety Report 20481934 (Version 3)
Quarter: 2022Q2

REPORT INFORMATION
  Report Type: Spontaneous
  Country: US (occurrence: US)
  Receive Date: 20220216
  Receipt Date: 20220526
  Transmission Date: 20220721
  Serious: No
  Sender: FDA-Public Use
  Company Number: US-PFIZER INC-2021783056

PATIENT
  Age: 61 Year
  Sex: Male

DRUGS (2)
  1. XELJANZ XR [Suspect]
     Active Substance: TOFACITINIB CITRATE
     Indication: Crohn^s disease
     Dosage: 11 MG, DAILY
     Route: 048
     Dates: start: 202101
  2. XELJANZ XR [Suspect]
     Active Substance: TOFACITINIB CITRATE
     Indication: Rheumatoid arthritis

REACTIONS (12)
  - Product dose omission in error [Unknown]
  - Off label use [Unknown]
  - Insomnia [Unknown]
  - Diarrhoea [Unknown]
  - Joint stiffness [Unknown]
  - Joint swelling [Unknown]
  - Arthralgia [Recovered/Resolved]
  - COVID-19 [Unknown]
  - Illness [Unknown]
  - Asthenia [Unknown]
  - Fatigue [Unknown]
  - Therapeutic response unexpected [Unknown]

NARRATIVE: CASE EVENT DATE: 20210101
